FAERS Safety Report 20770664 (Version 1)
Quarter: 2022Q2

REPORT INFORMATION
  Report Type: Report from Study
  Country: IT (occurrence: IT)
  Receive Date: 20220429
  Receipt Date: 20220429
  Transmission Date: 20220720
  Serious: Yes (Hospitalization, Other)
  Sender: FDA-Public Use
  Company Number: IT-FEDR-MF-002-3561003-20210507-0001SG

PATIENT
  Age: 71 Year
  Sex: Male
  Weight: 70 kg

DRUGS (5)
  1. BETOTAL [Concomitant]
     Indication: Confusional state
     Dosage: 1 TAB
     Route: 048
     Dates: start: 202105, end: 20210520
  2. PANTOPRAZOLE SODIUM [Concomitant]
     Active Substance: PANTOPRAZOLE SODIUM
     Indication: Gastrointestinal disorder
  3. LOPERAMIDE [Concomitant]
     Active Substance: LOPERAMIDE
     Indication: Diarrhoea
     Route: 048
     Dates: start: 20210428, end: 20210506
  4. METOCLOPRAMIDE HYDROCHLORIDE [Concomitant]
     Active Substance: METOCLOPRAMIDE HYDROCHLORIDE
     Indication: Vomiting
     Route: 048
     Dates: start: 20210428, end: 20210501
  5. SILODIX [Concomitant]
     Indication: Benign prostatic hyperplasia
     Dates: start: 20121114

REACTIONS (1)
  - Atrial fibrillation [Recovered/Resolved]

NARRATIVE: CASE EVENT DATE: 20210506
